FAERS Safety Report 21492547 (Version 1)
Quarter: 2022Q4

REPORT INFORMATION
  Report Type: Spontaneous
  Country: US (occurrence: US)
  Receive Date: 20221021
  Receipt Date: 20221021
  Transmission Date: 20230113
  Serious: No
  Sender: FDA-Public Use
  Company Number: US-SANOFI-01326862

PATIENT
  Age: 68 Year
  Sex: Female

DRUGS (2)
  1. LANTUS SOLOSTAR [Suspect]
     Active Substance: INSULIN GLARGINE
     Indication: Diabetes mellitus
     Dosage: 33 UNITS QD
  2. INSULIN LISPRO [Concomitant]
     Active Substance: INSULIN LISPRO

REACTIONS (1)
  - Glycosylated haemoglobin abnormal [Unknown]
